FAERS Safety Report 17404347 (Version 1)
Quarter: 2020Q1

REPORT INFORMATION
  Report Type: Spontaneous
  Country: US (occurrence: US)
  Receive Date: 20200211
  Receipt Date: 20200211
  Transmission Date: 20200409
  Serious: No
  Sender: FDA-Public Use
  Company Number: US-SHIRE-US202003765

PATIENT
  Sex: Male

DRUGS (1)
  1. HYQVIA [Suspect]
     Active Substance: HUMAN IMMUNOGLOBULIN G\HYALURONIDASE RECOMBINANT HUMAN
     Indication: PRODUCT USED FOR UNKNOWN INDICATION
     Route: 065

REACTIONS (7)
  - Pyrexia [Unknown]
  - Body temperature decreased [Unknown]
  - Malaise [Unknown]
  - Fatigue [Unknown]
  - Condition aggravated [Unknown]
  - Swelling [Unknown]
  - Headache [Unknown]
